FAERS Safety Report 7298921-8 (Version None)
Quarter: 2011Q1

REPORT INFORMATION
  Report Type: 
  Country: None (occurrence: None)
  Receive Date: 20110217
  Receipt Date: 20110208
  Transmission Date: 20110831
  Serious: Yes (Other)
  Sender: FDA-Public Use
  Company Number: PHHY2011US02401

PATIENT
  Sex: Female

DRUGS (10)
  1. DIOVAN HCT [Concomitant]
     Dosage: 160/25 (UNKNOWN UNIT), UNK
  2. PROZAC [Concomitant]
     Dosage: 20 MG, UNK
  3. POTASSIUM [Concomitant]
     Dosage: 20 MEQ, UNK
  4. VERAPAMIL - SLOW RELEASE [Concomitant]
     Dosage: 180 MG, UNK
  5. BACLOFEN [Concomitant]
     Dosage: 20 MG, UNK
  6. MACROBID [Concomitant]
     Dosage: 100 MG, UNK
  7. NEXIUM [Concomitant]
     Dosage: 40 MG, UNK
  8. NEURONTIN [Concomitant]
     Dosage: 600 MG, UNK
  9. GILENYA [Suspect]
     Indication: MULTIPLE SCLEROSIS
     Dosage: 0.5 MG, QD
     Route: 048
     Dates: start: 20110104
  10. AMANTADINE HCL [Concomitant]
     Dosage: 100 MG, UNK

REACTIONS (2)
  - URINARY TRACT INFECTION [None]
  - DIARRHOEA [None]
